FAERS Safety Report 22051184 (Version 1)
Quarter: 2023Q1

REPORT INFORMATION
  Report Type: Spontaneous
  Country: CN (occurrence: CN)
  Receive Date: 20230301
  Receipt Date: 20230301
  Transmission Date: 20230417
  Serious: Yes (Other)
  Sender: FDA-Public Use
  Company Number: CN-MLMSERVICE-20230217-4115188-1

PATIENT
  Age: 4 Decade
  Sex: Female

DRUGS (8)
  1. DEXAMETHASONE [Suspect]
     Active Substance: DEXAMETHASONE
     Indication: Philadelphia positive acute lymphocytic leukaemia
     Route: 065
  2. VINCRISTINE [Suspect]
     Active Substance: VINCRISTINE
     Indication: Philadelphia positive acute lymphocytic leukaemia
     Dosage: VPD
     Route: 065
  3. VINCRISTINE [Suspect]
     Active Substance: VINCRISTINE
     Dosage: PART A OF HYPER-CVAD
     Route: 065
  4. DAUNORUBICIN [Suspect]
     Active Substance: DAUNORUBICIN
     Indication: Philadelphia positive acute lymphocytic leukaemia
     Dosage: VPD
     Route: 065
  5. PREDNISONE [Suspect]
     Active Substance: PREDNISONE
     Indication: Philadelphia positive acute lymphocytic leukaemia
     Dosage: VPD
     Route: 065
  6. CYCLOPHOSPHAMIDE [Suspect]
     Active Substance: CYCLOPHOSPHAMIDE
     Indication: Philadelphia positive acute lymphocytic leukaemia
     Dosage: PART A OF HYPER-CVAD
     Route: 065
  7. DOXORUBICIN [Suspect]
     Active Substance: DOXORUBICIN
     Indication: Philadelphia positive acute lymphocytic leukaemia
     Dosage: PART A OF HYPER-CVAD
     Route: 065
  8. IMATINIB MESYLATE [Concomitant]
     Active Substance: IMATINIB MESYLATE
     Indication: Philadelphia positive acute lymphocytic leukaemia
     Route: 048
     Dates: start: 20211231

REACTIONS (1)
  - Myelosuppression [Unknown]
